FAERS Safety Report 5983582-8 (Version None)
Quarter: 2008Q4

REPORT INFORMATION
  Report Type: 
  Country: None (occurrence: None)
  Receive Date: 20081205
  Receipt Date: 20081205
  Transmission Date: 20090506
  Serious: No
  Sender: FDA-Public Use
  Company Number: None

PATIENT
  Sex: Female

DRUGS (3)
  1. COMBIGAN [Suspect]
     Dosage: 1 GTT BID OU
     Dates: start: 20080601
  2. COMBIGAN [Suspect]
     Dosage: 1 GTT BID OU
     Dates: start: 20081101
  3. .. [Concomitant]

REACTIONS (7)
  - DRY MOUTH [None]
  - HYPOAESTHESIA [None]
  - JOINT SWELLING [None]
  - MUSCULAR WEAKNESS [None]
  - PAIN IN EXTREMITY [None]
  - PHOTOPHOBIA [None]
  - SOMNOLENCE [None]
